FAERS Safety Report 10625581 (Version 2)
Quarter: 2014Q4

REPORT INFORMATION
  Report Type: Spontaneous
  Country: BR (occurrence: BR)
  Receive Date: 20141204
  Receipt Date: 20141204
  Transmission Date: 20150529
  Serious: Yes (Other)
  Sender: FDA-Public Use
  Company Number: BR-SA-2014SA058011

PATIENT
  Age: 32 Year
  Sex: Female
  Weight: 49.5 kg

DRUGS (3)
  1. AAS INFANTIL [Suspect]
     Active Substance: ASPIRIN
     Indication: COAGULOPATHY
     Dosage: 1 TABLET DAILY AT THE TIME OF LUNCH
     Route: 048
     Dates: start: 20140214, end: 20140815
  2. AAS INFANTIL [Suspect]
     Active Substance: ASPIRIN
     Indication: ANTICOAGULANT THERAPY
     Dosage: 1 TABLET DAILY AT THE TIME OF LUNCH
     Route: 048
     Dates: start: 20140214, end: 20140815
  3. CLEXANE SYRINGES [Suspect]
     Active Substance: ENOXAPARIN SODIUM
     Indication: HYPERCOAGULATION
     Dosage: 1 SYRINGE PER DAY OF 40 MG
     Route: 058
     Dates: start: 20140214, end: 20140829

REACTIONS (5)
  - Amniotic fluid volume decreased [Unknown]
  - Premature baby [None]
  - Abdominal pain upper [Recovered/Resolved]
  - Exposure during pregnancy [Unknown]
  - Caesarean section [None]

NARRATIVE: CASE EVENT DATE: 20140214
